FAERS Safety Report 5675585-8 (Version None)
Quarter: 2008Q1

REPORT INFORMATION
  Report Type: 
  Country: None (occurrence: None)
  Receive Date: 20080321
  Receipt Date: 20080310
  Transmission Date: 20080703
  Serious: Yes (Other)
  Sender: FDA-Public Use
  Company Number: JP-JNJFOC-20080302164

PATIENT
  Age: 70 Year
  Sex: Female

DRUGS (3)
  1. DUROTEP [Suspect]
     Indication: CANCER PAIN
     Route: 062
  2. PAVINAL [Concomitant]
     Indication: ANALGESIA
     Route: 058
  3. ASPARA [Concomitant]
     Indication: NUTRITIONAL SUPPORT
     Route: 042

REACTIONS (1)
  - CONVULSION [None]
